FAERS Safety Report 5033856-2 (Version None)
Quarter: 2006Q2

REPORT INFORMATION
  Report Type: 
  Country: None (occurrence: None)
  Receive Date: 20060623
  Receipt Date: 20060426
  Transmission Date: 20061013
  Serious: Yes (Other)
  Sender: FDA-Public Use
  Company Number: GBWYE582626APR06

PATIENT
  Sex: Female

DRUGS (4)
  1. ENBREL [Suspect]
     Indication: RHEUMATOID ARTHRITIS
     Route: 058
     Dates: start: 20020515
  2. UNSPECIFIED HORMONE REPLACEMENT THERAPY AGENT [Concomitant]
     Dosage: UNKNOWN
  3. COZAAR [Concomitant]
     Dosage: UNKNOWN
  4. PREDNISOLONE [Concomitant]

REACTIONS (1)
  - IRIDOCYCLITIS [None]
